FAERS Safety Report 17350464 (Version 2)
Quarter: 2020Q1

REPORT INFORMATION
  Report Type: Spontaneous
  Country: CH (occurrence: CH)
  Receive Date: 20200130
  Receipt Date: 20200219
  Transmission Date: 20200409
  Serious: Yes (Hospitalization)
  Sender: FDA-Public Use
  Company Number: CH-SA-2020SA012384

PATIENT
  Age: 58 Year
  Sex: Male
  Weight: 62.2 kg

DRUGS (1)
  1. MYOZYME [Suspect]
     Active Substance: ALGLUCOSIDASE ALFA
     Indication: GLYCOGEN STORAGE DISEASE TYPE II
     Dosage: 20 MG/KG, QOW
     Route: 041
     Dates: start: 20160923

REACTIONS (5)
  - Prostatic obstruction [Unknown]
  - Anaemia [Unknown]
  - Benign neoplasm of bladder [Unknown]
  - Prostatomegaly [Unknown]
  - Haematuria [Unknown]

NARRATIVE: CASE EVENT DATE: 201709
